FAERS Safety Report 7625564-6 (Version None)
Quarter: 2011Q3

REPORT INFORMATION
  Report Type: 
  Country: None (occurrence: None)
  Receive Date: 20110701
  Receipt Date: 20100604
  Transmission Date: 20111222
  Serious: Yes (Hospitalization)
  Sender: FDA-Public Use
  Company Number: 7007134

PATIENT
  Age: 55 Year
  Sex: Female

DRUGS (3)
  1. VITAMIN D [Concomitant]
  2. REBIF [Suspect]
     Indication: MULTIPLE SCLEROSIS
     Dosage: 44 MCG, 3 IN 1 WK, SUBCUTANEOUS
     Route: 058
     Dates: start: 20090831
  3. CALCIUM (CALCIUM GLUCONATE) [Concomitant]

REACTIONS (5)
  - COMPARTMENT SYNDROME [None]
  - HIP FRACTURE [None]
  - LOWER LIMB FRACTURE [None]
  - BLOOD PRESSURE INCREASED [None]
  - FALL [None]
